FAERS Safety Report 6882975-4 (Version None)
Quarter: 2010Q3

REPORT INFORMATION
  Report Type: 
  Country: None (occurrence: None)
  Receive Date: 20100702
  Receipt Date: 20100514
  Transmission Date: 20110219
  Serious: No
  Sender: FDA-Public Use
  Company Number: 2010041590

PATIENT
  Age: 51 Year
  Sex: Female
  Weight: 59.9 kg

DRUGS (6)
  1. ZOLOFT [Suspect]
     Indication: ANXIETY
     Dosage: 200 MG, 1X/DAY, ORAL
     Route: 048
     Dates: start: 20090101
  2. ZOLOFT [Suspect]
     Indication: DEPRESSION
     Dosage: 200 MG, 1X/DAY, ORAL
     Route: 048
     Dates: start: 20090101
  3. NEURONTIN [Concomitant]
  4. FLEXERIL [Concomitant]
  5. VICODIN [Concomitant]
  6. XANAX [Concomitant]

REACTIONS (2)
  - DEPRESSION [None]
  - DRUG EFFECT DECREASED [None]
